FAERS Safety Report 18284238 (Version 1)
Quarter: 2020Q3

REPORT INFORMATION
  Report Type: Spontaneous
  Country: NO (occurrence: NO)
  Receive Date: 20200918
  Receipt Date: 20200918
  Transmission Date: 20201103
  Serious: Yes (Hospitalization, Disabling)
  Sender: FDA-Public Use
  Company Number: NO-JNJFOC-20200914195

PATIENT
  Age: 32 Year
  Sex: Male
  Weight: 105 kg

DRUGS (1)
  1. RISPERDAL [Suspect]
     Active Substance: RISPERIDONE
     Indication: RESTLESSNESS
     Route: 065
     Dates: start: 2011, end: 2016

REACTIONS (5)
  - Dental caries [Unknown]
  - Weight increased [Unknown]
  - Blood testosterone abnormal [Unknown]
  - Blood oestrogen increased [Unknown]
  - Hypometabolism [Unknown]

NARRATIVE: CASE EVENT DATE: 2011
